FAERS Safety Report 15882004 (Version 1)
Quarter: 2019Q1

REPORT INFORMATION
  Report Type: Report from Study
  Country: GB (occurrence: GB)
  Receive Date: 20190128
  Receipt Date: 20190128
  Transmission Date: 20190417
  Serious: Yes (Other)
  Sender: FDA-Public Use
  Company Number: GB-PFIZER INC-2019032707

PATIENT
  Age: 67 Year
  Sex: Male

DRUGS (2)
  1. COSENTYX [Interacting]
     Active Substance: SECUKINUMAB
     Indication: PSORIASIS
     Dosage: 300 MG, MONTHLY (QMO)
     Route: 058
     Dates: start: 20181102
  2. PREGABALIN. [Suspect]
     Active Substance: PREGABALIN
     Dosage: UNK
     Route: 065

REACTIONS (4)
  - Somnolence [Unknown]
  - Drug interaction [Unknown]
  - Productive cough [Unknown]
  - Lethargy [Unknown]
